FAERS Safety Report 15594341 (Version 2)
Quarter: 2018Q4

REPORT INFORMATION
  Report Type: Spontaneous
  Country: GB (occurrence: GB)
  Receive Date: 20181106
  Receipt Date: 20181127
  Transmission Date: 20190205
  Serious: Yes (Hospitalization)
  Sender: FDA-Public Use
  Company Number: GB-PFIZER INC-2018448465

PATIENT
  Age: 39 Year
  Sex: Male

DRUGS (15)
  1. MAGNESIUM SULFATE. [Suspect]
     Active Substance: MAGNESIUM SULFATE
     Indication: PARENTERAL NUTRITION
     Dosage: UNK
     Route: 065
  2. GLUCOSE 50% [Suspect]
     Active Substance: DEXTROSE
     Dosage: UNK
  3. POTASSIUM ACETATE/POTASSIUM BICARBONATE/POTASSIUM CITRATE [Suspect]
     Active Substance: POTASSIUM
     Indication: PARENTERAL NUTRITION
     Dosage: UNK
     Route: 065
  4. CALCIUM CHLORIDE. [Suspect]
     Active Substance: CALCIUM CHLORIDE
     Indication: PARENTERAL NUTRITION
     Dosage: UNK
     Route: 065
  5. WATER FOR INJECTION [Suspect]
     Active Substance: WATER
     Indication: PARENTERAL NUTRITION
     Dosage: UNK
     Route: 065
  6. SODIUM GLYCEROPHOSPHATE [Suspect]
     Active Substance: SODIUM GLYCEROPHOSPHATE
     Dosage: UNK
  7. GLUCOSE 50% [Suspect]
     Active Substance: DEXTROSE
     Dosage: UNK
  8. ADDAVEN [Suspect]
     Active Substance: ELECTROLYTES NOS\MINERALS
     Indication: PARENTERAL NUTRITION
     Dosage: UNK
     Route: 065
  9. AMINOVEN 15% [Suspect]
     Active Substance: AMINO ACIDS
     Indication: PARENTERAL NUTRITION
     Dosage: UNK
     Route: 065
  10. SODIUM GLYCEROPHOSPHATE [Suspect]
     Active Substance: SODIUM GLYCEROPHOSPHATE
     Dosage: UNK
     Route: 065
  11. SODIUM ACETATE. [Suspect]
     Active Substance: SODIUM ACETATE
     Indication: PARENTERAL NUTRITION
     Dosage: UNK
     Route: 065
  12. SODIUM CHLORIDE. [Suspect]
     Active Substance: SODIUM CHLORIDE
     Indication: PARENTERAL NUTRITION
     Dosage: UNK
     Route: 065
  13. GLUCOSE 50% [Suspect]
     Active Substance: DEXTROSE
     Indication: PARENTERAL NUTRITION
     Dosage: UNK
     Route: 065
  14. GLUCOSE 50% [Suspect]
     Active Substance: DEXTROSE
     Dosage: UNK
  15. MULTIVITAMIN [ASCORBIC ACID;BIOTIN;CALCIUM PANTOTHENATE;CYANOCOBALAMIN [Suspect]
     Active Substance: VITAMINS
     Indication: PARENTERAL NUTRITION
     Dosage: UNK
     Route: 065

REACTIONS (3)
  - Body temperature increased [Unknown]
  - Urinary tract infection [Unknown]
  - Urine output decreased [Unknown]
